FAERS Safety Report 12706090 (Version 2)
Quarter: 2016Q3

REPORT INFORMATION
  Report Type: Spontaneous
  Country: US (occurrence: US)
  Receive Date: 20160901
  Receipt Date: 20160901
  Transmission Date: 20161109
  Serious: No
  Sender: FDA-Public Use
  Company Number: US-JAZZ-2016-US-007980

PATIENT
  Age: 55 Year
  Sex: Female

DRUGS (26)
  1. XYREM [Suspect]
     Active Substance: SODIUM OXYBATE
     Indication: INSOMNIA
     Dosage: 2.25 G, BID
     Route: 048
     Dates: start: 201604, end: 201604
  2. GABAPENTIN. [Concomitant]
     Active Substance: GABAPENTIN
  3. LISINOPRIL. [Concomitant]
     Active Substance: LISINOPRIL
  4. MIRAPEX [Concomitant]
     Active Substance: PRAMIPEXOLE DIHYDROCHLORIDE
  5. DULOXETINE HCL [Concomitant]
     Active Substance: DULOXETINE HYDROCHLORIDE
  6. TRILIPIX [Concomitant]
     Active Substance: FENOFIBRIC ACID
  7. VITAMIN D [Concomitant]
     Active Substance: CHOLECALCIFEROL
  8. ALPRAZOLAM. [Concomitant]
     Active Substance: ALPRAZOLAM
  9. COENZYME Q10 [Concomitant]
     Active Substance: UBIDECARENONE
  10. DHEA [Concomitant]
     Active Substance: PRASTERONE
  11. METHYLPREDNISOLONE. [Concomitant]
     Active Substance: METHYLPREDNISOLONE
  12. NIACIN. [Concomitant]
     Active Substance: NIACIN
  13. TEMAZEPAM. [Concomitant]
     Active Substance: TEMAZEPAM
  14. ZETIA [Concomitant]
     Active Substance: EZETIMIBE
  15. ASCORBIC ACID. [Concomitant]
     Active Substance: ASCORBIC ACID
  16. ASPIRIN. [Concomitant]
     Active Substance: ASPIRIN
  17. VITAMIN B12 [Concomitant]
     Active Substance: CYANOCOBALAMIN
  18. AZATHIOPRINE. [Concomitant]
     Active Substance: AZATHIOPRINE
  19. CARVEDILOL. [Concomitant]
     Active Substance: CARVEDILOL
  20. EXCEDRIN EXTRA STRENGTH [Concomitant]
     Active Substance: ACETAMINOPHEN\ASPIRIN\CAFFEINE
  21. TRAMADOL HCL [Concomitant]
     Active Substance: TRAMADOL HYDROCHLORIDE
  22. NOVOLOG [Concomitant]
     Active Substance: INSULIN ASPART
  23. OMEPRAZOLE. [Concomitant]
     Active Substance: OMEPRAZOLE
  24. AMLODIPINE BESYLATE. [Concomitant]
     Active Substance: AMLODIPINE BESYLATE
  25. LEVEMIR [Concomitant]
     Active Substance: INSULIN DETEMIR
  26. VITAMIN A [Concomitant]
     Active Substance: VITAMIN A

REACTIONS (1)
  - Pruritus [Unknown]

NARRATIVE: CASE EVENT DATE: 201604
